FAERS Safety Report 15066673 (Version 1)
Quarter: 2018Q2

REPORT INFORMATION
  Report Type: Report from Study
  Country: IL (occurrence: IL)
  Receive Date: 20180626
  Receipt Date: 20180626
  Transmission Date: 20180711
  Serious: Yes (Hospitalization, Other)
  Sender: FDA-Public Use
  Company Number: IL-IPSEN BIOPHARMACEUTICALS, INC.-2018-00060

PATIENT
  Age: 76 Year
  Sex: Female

DRUGS (13)
  1. METOCLOPRAMIDE. [Concomitant]
     Active Substance: METOCLOPRAMIDE
     Route: 048
  2. SIMVASTATIN. [Concomitant]
     Active Substance: SIMVASTATIN
     Route: 048
  3. ONDANSETRON HCL [Concomitant]
     Active Substance: ONDANSETRON HYDROCHLORIDE
     Route: 048
  4. RISEDRONATE SODIUM. [Concomitant]
     Active Substance: RISEDRONATE SODIUM
     Route: 048
  5. SOMATULINE AUTOGEL 120MG [Suspect]
     Active Substance: LANREOTIDE ACETATE
     Indication: ACROMEGALY
     Dosage: 120 MG
     Route: 058
     Dates: start: 20030709
  6. LERCANIDIPINE HYDROCHLORIDE [Concomitant]
     Active Substance: LERCANIDIPINE HYDROCHLORIDE
     Route: 048
  7. PERCOCET [Concomitant]
     Active Substance: ACETAMINOPHEN\OXYCODONE HYDROCHLORIDE
     Route: 048
  8. JANUET [Concomitant]
     Active Substance: METFORMIN HYDROCHLORIDE\SITAGLIPTIN PHOSPHATE
     Dosage: 50/850
     Route: 048
  9. RAMIPRIL. [Concomitant]
     Active Substance: RAMIPRIL
     Route: 048
  10. ENOXAPARINE SODIUM [Concomitant]
     Route: 058
  11. OMEPRAZOLE. [Concomitant]
     Active Substance: OMEPRAZOLE
     Route: 048
  12. ENOXAPARINE SODIUM [Concomitant]
     Route: 058
  13. TARGIN [Concomitant]
     Active Substance: NALOXONE HYDROCHLORIDE\OXYCODONE HYDROCHLORIDE
     Route: 048

REACTIONS (16)
  - Pulmonary embolism [Unknown]
  - Thrombosis [Unknown]
  - Ovarian mass [Unknown]
  - Leiomyoma [Unknown]
  - Oedema peripheral [Unknown]
  - Hypertension [Unknown]
  - Varicose vein [Unknown]
  - Abdominal mass [Unknown]
  - Osteoarthritis [Unknown]
  - Paraesthesia [Unknown]
  - Cholelithiasis [Unknown]
  - Type V hyperlipidaemia [Unknown]
  - Localised oedema [Unknown]
  - Dyspnoea [Unknown]
  - Endometrial cancer [Unknown]
  - Ascites [Unknown]

NARRATIVE: CASE EVENT DATE: 201712
